FAERS Safety Report 8496859-1 (Version None)
Quarter: 2012Q3

REPORT INFORMATION
  Report Type: 
  Country: None (occurrence: None)
  Receive Date: 20120709
  Receipt Date: 20120627
  Transmission Date: 20120928
  Serious: Yes (Other)
  Sender: FDA-Public Use
  Company Number: US-ELI_LILLY_AND_COMPANY-US201205008780

PATIENT
  Sex: Female

DRUGS (1)
  1. FORTEO [Suspect]
     Indication: OSTEOPOROSIS
     Dosage: 20 UG, QD
     Dates: start: 20120301

REACTIONS (5)
  - OEDEMA PERIPHERAL [None]
  - FALL [None]
  - CARDIAC FAILURE CONGESTIVE [None]
  - DEMENTIA ALZHEIMER'S TYPE [None]
  - OEDEMA [None]
